FAERS Safety Report 19042969 (Version 1)
Quarter: 2021Q1

REPORT INFORMATION
  Report Type: Spontaneous
  Country: JP (occurrence: JP)
  Receive Date: 20210322
  Receipt Date: 20210322
  Transmission Date: 20210420
  Serious: Yes (Other)
  Sender: FDA-Public Use
  Company Number: JP-BAYER-2021-108442

PATIENT
  Sex: Male

DRUGS (3)
  1. NUBEQA [Suspect]
     Active Substance: DAROLUTAMIDE
     Dosage: DOSAGE DECREASED
  2. NUBEQA [Suspect]
     Active Substance: DAROLUTAMIDE
  3. NUBEQA [Suspect]
     Active Substance: DAROLUTAMIDE
     Dosage: RETURNED TO THE PREVIOUS DOSE

REACTIONS (1)
  - Hepatic function abnormal [Recovered/Resolved]
